FAERS Safety Report 4522708-X (Version None)
Quarter: 2004Q4

REPORT INFORMATION
  Report Type: 
  Country: None (occurrence: None)
  Receive Date: 20041207
  Receipt Date: 20041118
  Transmission Date: 20050328
  Serious: Yes (Other)
  Sender: FDA-Public Use
  Company Number: FR_040904845

PATIENT
  Age: 34 Year
  Sex: Male

DRUGS (2)
  1. ZYPREXA [Suspect]
     Indication: SCHIZOPHRENIA
     Dosage: 10 MG DAY
     Dates: start: 20040615, end: 20040713
  2. XANAX (ALPRAZOLAM DUM) [Concomitant]

REACTIONS (1)
  - HEPATOCELLULAR DAMAGE [None]
